FAERS Safety Report 10084887 (Version 1)
Quarter: 2014Q2

REPORT INFORMATION
  Report Type: Spontaneous
  Country: US (occurrence: US)
  Receive Date: 20140417
  Receipt Date: 20140417
  Transmission Date: 20141212
  Serious: No
  Sender: FDA-Public Use
  Company Number: US-BAYER-2014-055433

PATIENT
  Sex: Female

DRUGS (2)
  1. BETASERON [Suspect]
     Indication: MULTIPLE SCLEROSIS
     Dosage: UNK
     Dates: end: 201311
  2. TYSABRI [Suspect]
     Indication: MULTIPLE SCLEROSIS
     Dosage: UNK
     Route: 042
     Dates: start: 201311

REACTIONS (5)
  - Foot fracture [None]
  - Fall [None]
  - Fall [None]
  - Hand fracture [None]
  - Drug ineffective [None]
